FAERS Safety Report 8806368 (Version 3)
Quarter: 2012Q4

REPORT INFORMATION
  Report Type: 
  Country: US (occurrence: US)
  Receive Date: 20120925
  Receipt Date: 20121026
  Transmission Date: 20130627
  Serious: Yes (Death, Hospitalization)
  Sender: FDA-Public Use
  Company Number: US-BRISTOL-MYERS SQUIBB COMPANY-16975237

PATIENT
  Age: 69 Year
  Sex: Male

DRUGS (6)
  1. YERVOY [Suspect]
     Indication: METASTATIC MALIGNANT MELANOMA
     Dosage: INF:3,28Jun12,19Jul12
3.5months
     Route: 042
     Dates: start: 20120607
  2. MYCOPHENOLIC ACID [Concomitant]
     Dosage: 1df= 1.5-2gm/D
  3. METHYLPREDNISONE [Concomitant]
  4. INSULIN [Concomitant]
     Indication: DIABETES MELLITUS
  5. ALDACTONE [Concomitant]
  6. OXYCODONE [Concomitant]
     Indication: BACK PAIN
     Dosage: 4-6hr
     Route: 048

REACTIONS (2)
  - Malignant neoplasm progression [Fatal]
  - Platelet count decreased [Unknown]
